FAERS Safety Report 6542184-5 (Version None)
Quarter: 2010Q1

REPORT INFORMATION
  Report Type: 
  Country: None (occurrence: None)
  Receive Date: 20100119
  Receipt Date: 20091201
  Transmission Date: 20100710
  Serious: Yes (Death)
  Sender: FDA-Public Use
  Company Number: A0832060A

PATIENT
  Age: 53 Year
  Sex: Male
  Weight: 106.8 kg

DRUGS (12)
  1. AVANDIA [Suspect]
     Dosage: 8MG PER DAY
     Route: 048
     Dates: end: 20090125
  2. AVANDAMET [Suspect]
     Indication: DIABETES MELLITUS
     Route: 048
     Dates: start: 20040101, end: 20060801
  3. COREG [Concomitant]
  4. METFORMIN HCL [Concomitant]
  5. GLUCOTROL [Concomitant]
  6. TOPROL-XL [Concomitant]
  7. HYZAAR [Concomitant]
  8. INNOPRAN XL [Concomitant]
  9. LOTREL [Concomitant]
  10. LIPITOR [Concomitant]
  11. EFFEXOR [Concomitant]
  12. BENICAR [Concomitant]

REACTIONS (3)
  - ARTERIOSCLEROSIS [None]
  - CARDIAC ARREST [None]
  - HYPERTENSIVE HEART DISEASE [None]
